FAERS Safety Report 5676336-3 (Version None)
Quarter: 2008Q1

REPORT INFORMATION
  Report Type: 
  Country: None (occurrence: None)
  Receive Date: 20080321
  Receipt Date: 20080311
  Transmission Date: 20080703
  Serious: Yes (Other)
  Sender: FDA-Public Use
  Company Number: AU-PFIZER INC-2008022443

PATIENT
  Sex: Female

DRUGS (1)
  1. CHANTIX [Suspect]

REACTIONS (4)
  - BRADYPHRENIA [None]
  - JUDGEMENT IMPAIRED [None]
  - MENSTRUAL DISORDER [None]
  - ROAD TRAFFIC ACCIDENT [None]
